FAERS Safety Report 25864731 (Version 1)
Quarter: 2025Q3

REPORT INFORMATION
  Report Type: Spontaneous
  Country: US (occurrence: US)
  Receive Date: 20250930
  Receipt Date: 20250930
  Transmission Date: 20251020
  Serious: Yes (Hospitalization)
  Sender: OTSUKA
  Company Number: US-OTSUKA-2025_023716

PATIENT
  Age: 23 Year
  Sex: Male

DRUGS (1)
  1. REXULTI [Suspect]
     Active Substance: BREXPIPRAZOLE
     Indication: Depression
     Dosage: 1 DF (0.5 MG), DAILY
     Dates: start: 202508, end: 202508

REACTIONS (1)
  - Obsessive-compulsive symptom [Recovered/Resolved]

NARRATIVE: CASE EVENT DATE: 20250801
